FAERS Safety Report 4413070-1 (Version None)
Quarter: 2004Q3

REPORT INFORMATION
  Report Type: 
  Country: None (occurrence: None)
  Receive Date: 20040802
  Receipt Date: 20040802
  Transmission Date: 20050211
  Serious: Yes (Other)
  Sender: FDA-Public Use
  Company Number: None

PATIENT
  Sex: Female
  Weight: 95.2554 kg

DRUGS (2)
  1. AVANDIA [Suspect]
     Indication: DIABETES MELLITUS
     Dosage: 4 MG QD ORAL 4 MG BID ORAL
     Route: 048
     Dates: start: 19991001, end: 20021001
  2. AVANDIA [Suspect]
     Indication: DIABETES MELLITUS
     Dosage: 4 MG QD ORAL 4 MG BID ORAL
     Route: 048
     Dates: start: 20030601, end: 20040801

REACTIONS (7)
  - CHEST PAIN [None]
  - DILATATION VENTRICULAR [None]
  - DYSPNOEA [None]
  - FILARIASIS [None]
  - GENITAL DISORDER FEMALE [None]
  - OEDEMA PERIPHERAL [None]
  - WEIGHT INCREASED [None]
